FAERS Safety Report 11772390 (Version 1)
Quarter: 2015Q4

REPORT INFORMATION
  Report Type: Spontaneous
  Country: KZ (occurrence: KZ)
  Receive Date: 20151124
  Receipt Date: 20151124
  Transmission Date: 20160304
  Serious: Yes (Other)
  Sender: FDA-Public Use
  Company Number: KZ-IMPAX LABORATORIES, INC-2015-IPXL-01207

PATIENT
  Age: 4 Year
  Sex: Female

DRUGS (1)
  1. ALBENZA [Suspect]
     Active Substance: ALBENDAZOLE
     Indication: PARASITIC INFECTION PROPHYLAXIS
     Dosage: UNK UNK, SINGLE
     Route: 065
     Dates: start: 20151101, end: 20151101

REACTIONS (3)
  - Anal pruritus [Recovered/Resolved]
  - Erythema [Recovered/Resolved]
  - Pruritus genital [Recovered/Resolved]

NARRATIVE: CASE EVENT DATE: 201511
